FAERS Safety Report 6139125-1 (Version None)
Quarter: 2009Q2

REPORT INFORMATION
  Report Type: 
  Country: None (occurrence: None)
  Receive Date: 20090401
  Receipt Date: 20090318
  Transmission Date: 20091009
  Serious: Yes (Hospitalization, Other)
  Sender: FDA-Public Use
  Company Number: US-PFIZER INC-2009185370

PATIENT
  Sex: Female
  Weight: 72.562 kg

DRUGS (1)
  1. LYRICA [Suspect]
     Indication: FIBROMYALGIA
     Dosage: UNK
     Dates: start: 20090313, end: 20090315

REACTIONS (3)
  - CONVULSION [None]
  - HEART RATE INCREASED [None]
  - HYPERTENSION [None]
